FAERS Safety Report 9752305 (Version 1)
Quarter: 2013Q4

REPORT INFORMATION
  Report Type: Spontaneous
  Country: GB (occurrence: None)
  Receive Date: 20131211
  Receipt Date: 20131211
  Transmission Date: 20140711
  Serious: Yes (Disabling, Other)
  Sender: FDA-Public Use
  Company Number: 2059451

PATIENT
  Age: 63 Year
  Sex: Female
  Weight: 72.5 kg

DRUGS (8)
  1. AMIKACIN [Suspect]
     Indication: MYCOBACTERIUM ABSCESSUS INFECTION
     Dates: start: 20120301
  2. FERROUS SULPHATE [Suspect]
     Indication: MYCOBACTERIUM ABSCESSUS INFECTION
  3. EXEMESTANE [Concomitant]
  4. NAPROXEN [Concomitant]
  5. TRAMADOL [Concomitant]
  6. PARACETAMOL [Concomitant]
  7. LANSOPRAZOLE [Concomitant]
  8. CLARITHROMYCIN [Concomitant]

REACTIONS (12)
  - Drug interaction [None]
  - Weight decreased [None]
  - Ototoxicity [None]
  - Deafness neurosensory [None]
  - Tinnitus [None]
  - Glomerular filtration rate decreased [None]
  - Balance disorder [None]
  - Drug ineffective [None]
  - Hypertension [None]
  - Urinary tract infection [None]
  - Hypogammaglobulinaemia [None]
  - Abscess [None]
